FAERS Safety Report 8467848-8 (Version None)
Quarter: 2012Q2

REPORT INFORMATION
  Report Type: 
  Country: None (occurrence: None)
  Receive Date: 20120626
  Receipt Date: 20120618
  Transmission Date: 20120825
  Serious: Yes (Life-Threatening, Hospitalization)
  Sender: FDA-Public Use
  Company Number: JP-GLAXOSMITHKLINE-B0801476A

PATIENT
  Sex: Male

DRUGS (12)
  1. ANAFRANIL [Concomitant]
     Indication: DEPRESSION
     Dosage: 75MG PER DAY
     Route: 048
  2. HIRNAMIN [Concomitant]
     Indication: INSOMNIA
     Dosage: 50MG PER DAY
     Route: 048
  3. LAMICTAL [Suspect]
     Indication: DEPRESSION
     Dosage: 75MG PER DAY
     Route: 048
     Dates: start: 20120330, end: 20120406
  4. LAMICTAL [Suspect]
     Dosage: 100MG PER DAY
     Route: 048
     Dates: start: 20120407
  5. PAXIL [Suspect]
     Indication: DEPRESSION
     Dosage: 40MG PER DAY
     Route: 048
  6. ABILIFY [Concomitant]
     Dosage: 24MG PER DAY
     Route: 048
  7. FLUNITRAZEPAM [Concomitant]
     Indication: INSOMNIA
     Dosage: 4MG PER DAY
     Route: 048
  8. CYMBALTA [Concomitant]
     Indication: DEPRESSION
     Dosage: 60MG PER DAY
     Route: 048
  9. SEROQUEL [Concomitant]
     Indication: INSOMNIA
     Dosage: 200MG PER DAY
     Route: 048
  10. AMOXAPINE [Concomitant]
     Indication: DEPRESSION
     Dosage: 75MG PER DAY
     Route: 048
  11. AMOBAN [Concomitant]
     Indication: INSOMNIA
     Dosage: 10MG PER DAY
     Route: 048
  12. LITHIUM CARBONATE [Concomitant]
     Indication: DEPRESSION
     Dosage: 600MG PER DAY
     Route: 048

REACTIONS (5)
  - DRUG RASH WITH EOSINOPHILIA AND SYSTEMIC SYMPTOMS [None]
  - RASH GENERALISED [None]
  - PYREXIA [None]
  - LOSS OF CONSCIOUSNESS [None]
  - TOXIC SKIN ERUPTION [None]
